FAERS Safety Report 9891990 (Version 11)
Quarter: 2016Q1

REPORT INFORMATION
  Report Type: Spontaneous
  Country: US (occurrence: US)
  Receive Date: 20140212
  Receipt Date: 20160308
  Transmission Date: 20160526
  Serious: Yes (Other)
  Sender: FDA-Public Use
  Company Number: US-JNJFOC-20140204274

PATIENT
  Sex: Male

DRUGS (6)
  1. GEODON [Suspect]
     Active Substance: ZIPRASIDONE HYDROCHLORIDE\ZIPRASIDONE MESYLATE
     Indication: PRODUCT USED FOR UNKNOWN INDICATION
     Route: 065
  2. DEPAKOTE [Suspect]
     Active Substance: DIVALPROEX SODIUM
     Indication: PRODUCT USED FOR UNKNOWN INDICATION
     Route: 065
  3. ZYPREXA [Suspect]
     Active Substance: OLANZAPINE
     Indication: PRODUCT USED FOR UNKNOWN INDICATION
     Route: 065
  4. LITHIUM. [Suspect]
     Active Substance: LITHIUM
     Indication: PRODUCT USED FOR UNKNOWN INDICATION
     Route: 065
     Dates: start: 2001
  5. RISPERDAL [Suspect]
     Active Substance: RISPERIDONE
     Indication: PRODUCT USED FOR UNKNOWN INDICATION
     Route: 048
     Dates: start: 1997, end: 2001
  6. ABILIFY [Suspect]
     Active Substance: ARIPIPRAZOLE
     Indication: PRODUCT USED FOR UNKNOWN INDICATION
     Route: 065

REACTIONS (17)
  - Emotional disorder [Recovered/Resolved]
  - Dyssomnia [Unknown]
  - Endocrine disorder [Unknown]
  - Nipple disorder [Unknown]
  - Diabetes mellitus [Unknown]
  - Motor dysfunction [Unknown]
  - Agitation [Not Recovered/Not Resolved]
  - Aggression [Unknown]
  - Obesity [Unknown]
  - Mental impairment [Unknown]
  - Anxiety [Unknown]
  - Disturbance in attention [Unknown]
  - Gynaecomastia [Unknown]
  - Retracted nipple [Unknown]
  - Hyperprolactinaemia [Recovered/Resolved]
  - Delayed puberty [Unknown]
  - Enuresis [Unknown]
